FAERS Safety Report 4367675-7 (Version None)
Quarter: 2004Q2

REPORT INFORMATION
  Report Type: 
  Country: None (occurrence: None)
  Receive Date: 20040601
  Receipt Date: 20040507
  Transmission Date: 20050107
  Serious: Yes (Death, Hospitalization)
  Sender: FDA-Public Use
  Company Number: JP-GLAXOSMITHKLINE-B0332082A

PATIENT
  Age: 59 Year
  Sex: Female

DRUGS (21)
  1. ZEFIX [Suspect]
     Indication: HEPATITIS B
     Route: 048
     Dates: start: 20010727, end: 20020825
  2. WELLFERON [Concomitant]
  3. PURSENNID [Concomitant]
     Route: 048
  4. FAMOTIDINE [Concomitant]
     Route: 048
  5. DICLOFENAC SODIUM [Concomitant]
     Route: 054
  6. MECOBALAMIN [Concomitant]
     Route: 048
  7. LACTULOSE [Concomitant]
     Route: 048
  8. INDOMETHACIN [Concomitant]
     Route: 061
  9. DIAZEPAM [Concomitant]
     Route: 048
  10. AMMONIUM GLYCYRRHIZATE [Concomitant]
     Route: 042
  11. AZULENE [Concomitant]
     Route: 048
  12. TEPRENONE [Concomitant]
     Route: 048
  13. WHITE SOFT PARAFFIN [Concomitant]
     Route: 061
  14. POVIDONE IODINE [Concomitant]
     Route: 002
  15. URSODEOXYCHOLIC ACID [Concomitant]
     Route: 048
  16. DIPHENHYDRAMINE HCL [Concomitant]
     Route: 061
  17. SODIUM BICARBONATE [Concomitant]
     Route: 061
  18. FUROSEMIDE [Concomitant]
     Route: 048
  19. MAGNESIUM OXIDE [Concomitant]
     Route: 048
  20. ALBUMIN (HUMAN) [Concomitant]
     Route: 042
  21. MENATETRENONE [Concomitant]
     Route: 042

REACTIONS (6)
  - ALANINE AMINOTRANSFERASE INCREASED [None]
  - ASPARTATE AMINOTRANSFERASE INCREASED [None]
  - BLOOD BILIRUBIN INCREASED [None]
  - HYPOAESTHESIA [None]
  - JAUNDICE [None]
  - LIVER DISORDER [None]
